FAERS Safety Report 8221711-6 (Version None)
Quarter: 2012Q1

REPORT INFORMATION
  Report Type: 
  Country: None (occurrence: None)
  Receive Date: 20120320
  Receipt Date: 20120314
  Transmission Date: 20120608
  Serious: No
  Sender: FDA-Public Use
  Company Number: US-PFIZER INC-2012068319

PATIENT
  Sex: Male
  Weight: 100 kg

DRUGS (9)
  1. QUINAPRIL HCL [Interacting]
     Dosage: 40 MG, DAILY
     Dates: start: 20110101
  2. SIMVASTATIN [Interacting]
     Indication: LOW DENSITY LIPOPROTEIN INCREASED
     Dosage: 20 MG, DAILY
     Dates: start: 20120101
  3. CITALOPRAM HYDROBROMIDE [Interacting]
     Dosage: 20 MG, DAILY
     Dates: start: 20110101
  4. CARVEDILOL [Interacting]
     Dosage: 25 MG, DAILY
     Dates: start: 20110101
  5. BISOPROLOL FUMARATE AND HYDROCHLOROTHIAZIDE [Interacting]
     Dosage: 10/625 MG, DAILY
     Dates: start: 20110101
  6. VIAGRA [Suspect]
     Indication: ERECTILE DYSFUNCTION
     Dosage: UNK, AS NEEDED
     Route: 048
     Dates: end: 20120101
  7. METFORMIN HCL [Interacting]
     Dosage: 1000 MG, 2X/DAY
     Dates: start: 20110101
  8. AMLODIPINE BESYLATE [Interacting]
     Dosage: 10 MG, DAILY
     Dates: start: 20110101
  9. GLYBURIDE [Interacting]
     Dosage: 5 MG, DAILY
     Dates: start: 20110101

REACTIONS (3)
  - DRUG INEFFECTIVE [None]
  - LOW DENSITY LIPOPROTEIN INCREASED [None]
  - DRUG INTERACTION [None]
